FAERS Safety Report 10422109 (Version 1)
Quarter: 2014Q3

REPORT INFORMATION
  Report Type: Spontaneous
  Country: US (occurrence: US)
  Receive Date: 20140901
  Receipt Date: 20140901
  Transmission Date: 20150326
  Serious: No
  Sender: FDA-Public Use
  Company Number: US-SA-2014SA041092

PATIENT
  Age: 72 Year
  Sex: Female

DRUGS (1)
  1. IRBESARTAN WINTHROP [Suspect]
     Active Substance: IRBESARTAN
     Indication: BLOOD PRESSURE MANAGEMENT
     Route: 065

REACTIONS (1)
  - Blood pressure diastolic increased [Not Recovered/Not Resolved]
